FAERS Safety Report 9752283 (Version 1)
Quarter: 2013Q4

REPORT INFORMATION
  Report Type: Spontaneous
  Country: US (occurrence: None)
  Receive Date: 20131211
  Receipt Date: 20131211
  Transmission Date: 20140711
  Serious: No
  Sender: FDA-Public Use
  Company Number: None

PATIENT
  Age: 57 None
  Sex: Female

DRUGS (3)
  1. PEG INTRON [Suspect]
     Indication: HEPATITIS C
     Route: 058
     Dates: start: 20130730, end: 20131206
  2. RIBASPHERE [Suspect]
     Route: 048
     Dates: start: 20130730, end: 20131206
  3. RIBASPHERE [Suspect]

REACTIONS (1)
  - Laboratory test abnormal [None]
